FAERS Safety Report 25094202 (Version 1)
Quarter: 2025Q1

REPORT INFORMATION
  Report Type: Spontaneous
  Country: US (occurrence: None)
  Receive Date: 20250318
  Receipt Date: 20250318
  Transmission Date: 20250409
  Serious: Yes (unspecified)
  Sender: FDA-CTU
  Company Number: None

PATIENT
  Age: 59 Year
  Sex: Male
  Weight: 68 kg

DRUGS (1)
  1. LINEZOLID [Suspect]
     Active Substance: LINEZOLID
     Indication: Enterococcal infection
     Dosage: FREQUENCY : TWICE A DAY;?OTHER ROUTE : PER TUBE;?
     Route: 050
     Dates: start: 20241011, end: 20250311

REACTIONS (3)
  - Thrombocytopenia [None]
  - Lactic acidosis [None]
  - Renal failure [None]

NARRATIVE: CASE EVENT DATE: 20250311
